FAERS Safety Report 15356145 (Version 1)
Quarter: 2018Q3

REPORT INFORMATION
  Report Type: Spontaneous
  Country: US (occurrence: US)
  Receive Date: 20180906
  Receipt Date: 20180906
  Transmission Date: 20181010
  Serious: Yes (Other)
  Sender: FDA-Public Use
  Company Number: US-RECKITT BENCKISER HEALTHCARE INT LIMITED-RB-90661-2018

PATIENT
  Age: 41 Year
  Sex: Female

DRUGS (2)
  1. MUCINEX DM MAXIMUM STRENGTH [Suspect]
     Active Substance: DEXTROMETHORPHAN HYDROBROMIDE\GUAIFENESIN
     Indication: PRODUCT USED FOR UNKNOWN INDICATION
     Dosage: 1200 MG, UNK
     Route: 048
     Dates: start: 20180831
  2. DELSYM [Suspect]
     Active Substance: DEXTROMETHORPHAN
     Indication: NASOPHARYNGITIS
     Dosage: UNK
     Route: 065
     Dates: start: 20180831

REACTIONS (3)
  - Hypoaesthesia oral [Not Recovered/Not Resolved]
  - Poisoning [Not Recovered/Not Resolved]
  - Gait inability [Not Recovered/Not Resolved]

NARRATIVE: CASE EVENT DATE: 20180831
